FAERS Safety Report 14897198 (Version 1)
Quarter: 2018Q2

REPORT INFORMATION
  Report Type: Spontaneous
  Country: BR (occurrence: BR)
  Receive Date: 20180515
  Receipt Date: 20180515
  Transmission Date: 20180711
  Serious: Yes (Hospitalization)
  Sender: FDA-Public Use
  Company Number: BR-SA-2018SA135916

PATIENT
  Age: 72 Year
  Sex: Female

DRUGS (3)
  1. ENBREL [Suspect]
     Active Substance: ETANERCEPT
     Indication: RHEUMATOID ARTHRITIS
     Route: 065
  2. ENBREL [Suspect]
     Active Substance: ETANERCEPT
     Indication: RHEUMATOID ARTHRITIS
     Route: 065
     Dates: start: 1998
  3. ARAVA [Suspect]
     Active Substance: LEFLUNOMIDE
     Indication: FINGER DEFORMITY
     Route: 048

REACTIONS (5)
  - Surgery [Unknown]
  - Prosthesis implantation [Unknown]
  - Finger deformity [Unknown]
  - Pain [Unknown]
  - Infection [Unknown]
